FAERS Safety Report 5696372-0 (Version None)
Quarter: 2008Q2

REPORT INFORMATION
  Report Type: 
  Country: None (occurrence: None)
  Receive Date: 20080408
  Receipt Date: 20080328
  Transmission Date: 20081010
  Serious: Yes (Other)
  Sender: FDA-Public Use
  Company Number: AU-PFIZER INC-2008028304

PATIENT
  Age: 62 Year
  Sex: Female

DRUGS (4)
  1. CELEBREX [Suspect]
     Indication: SCIATIC NERVE NEUROPATHY
  2. NUROFEN [Concomitant]
  3. ACETYLSALICYLIC ACID SRT [Concomitant]
  4. PANADOL [Concomitant]

REACTIONS (7)
  - ASTHMA [None]
  - BLISTER [None]
  - FLUSHING [None]
  - HYPERSENSITIVITY [None]
  - PALPITATIONS [None]
  - PYREXIA [None]
  - SWELLING FACE [None]
